FAERS Safety Report 16156173 (Version 1)
Quarter: 2019Q2

REPORT INFORMATION
  Report Type: Spontaneous
  Country: FR (occurrence: FR)
  Receive Date: 20190404
  Receipt Date: 20190404
  Transmission Date: 20190711
  Serious: Yes (Other)
  Sender: FDA-Public Use
  Company Number: FR-SUN PHARMACEUTICAL INDUSTRIES LTD-2019RR-204074

PATIENT
  Age: 62 Year
  Sex: Female
  Weight: 65 kg

DRUGS (12)
  1. ZARZIO [Concomitant]
     Active Substance: FILGRASTIM
     Indication: NEUTROPENIA
     Dosage: 1 DOSAGE FORM, DAILY
     Route: 042
     Dates: start: 20190218
  2. CELLCEPT 500 MG, POUDRE POUR SOLUTION A DILUER POUR PERFUSION [Concomitant]
     Indication: PROPHYLAXIS AGAINST TRANSPLANT REJECTION
     Dosage: 1 GRAM, BID
     Route: 042
     Dates: start: 20190217
  3. NOXAFIL [Concomitant]
     Active Substance: POSACONAZOLE
     Indication: ANTIFUNGAL PROPHYLAXIS
     Dosage: 300 MILLIGRAM, DAILY
     Route: 042
     Dates: start: 20190222, end: 20190227
  4. LANSOPRAZOLE. [Suspect]
     Active Substance: LANSOPRAZOLE
     Indication: PROPHYLAXIS
     Dosage: 15 MILLIGRAM, DAILY
     Route: 048
     Dates: start: 20190219, end: 20190223
  5. HEPARINE SODIQUE [Concomitant]
     Active Substance: HEPARIN SODIUM
     Indication: PROPHYLAXIS
     Dosage: 5000 INTERNATIONAL UNIT, QD
     Route: 042
     Dates: start: 20190207, end: 20190223
  6. ACICLOVIR [Suspect]
     Active Substance: ACYCLOVIR
     Indication: APLASIA
     Dosage: 750 MILLIGRAM, DAILY
     Route: 042
     Dates: start: 20190220, end: 20190223
  7. ZOPHREN 8 MG/4 ML, SOLUTION INJECTABLE EN SERINGUE PRE-REMPLIE [Suspect]
     Active Substance: ONDANSETRON
     Indication: NAUSEA
     Dosage: 1 DOSAGE FORM, DAILY
     Route: 042
     Dates: start: 20190207, end: 20190223
  8. MORPHINE [Concomitant]
     Active Substance: MORPHINE
     Indication: PAIN
     Dosage: 2 MILLIGRAM,
     Route: 042
     Dates: start: 20190220, end: 20190223
  9. METOCLOPRAMIDE. [Suspect]
     Active Substance: METOCLOPRAMIDE
     Indication: NAUSEA
     Dosage: 120 MILLIGRAM, DAILY
     Route: 048
     Dates: start: 20190207, end: 20190223
  10. CEFTAZIDIME. [Suspect]
     Active Substance: CEFTAZIDIME
     Indication: INFECTION
     Dosage: 6 GRAM, DAILY
     Route: 042
     Dates: start: 20190215, end: 20190223
  11. SANDIMMUN 50 MG/ML, SOLUTION INJECTABLE POUR PERFUSION I.V. [Concomitant]
     Active Substance: CYCLOSPORINE
     Indication: PROPHYLAXIS AGAINST TRANSPLANT REJECTION
     Dosage: 1 DOSAGE FORM, QD
     Route: 042
     Dates: start: 20190217
  12. CHOLURSO 250 MG, COMPRIME PELLICULE [Concomitant]
     Indication: PRODUCT USED FOR UNKNOWN INDICATION
     Dosage: 3 DOSAGE FORM, DAILY
     Route: 048
     Dates: start: 20190212

REACTIONS (3)
  - Coma [Recovered/Resolved]
  - Clonus [Recovered/Resolved]
  - Seizure like phenomena [Recovered/Resolved]

NARRATIVE: CASE EVENT DATE: 20190223
